FAERS Safety Report 6710324-0 (Version None)
Quarter: 2010Q2

REPORT INFORMATION
  Report Type: 
  Country: None (occurrence: None)
  Receive Date: 20100504
  Receipt Date: 20100420
  Transmission Date: 20101027
  Serious: Yes (Other)
  Sender: FDA-Public Use
  Company Number: PHEH2010US03098

PATIENT
  Age: 55 Year
  Sex: Male

DRUGS (11)
  1. ZOMETA [Suspect]
     Indication: METASTASES TO BONE
     Dosage: 4 MG, QMO
     Route: 042
  2. METHADONE HCL [Concomitant]
     Dosage: 5 MG, UNK
     Route: 048
  3. PERCOCET [Concomitant]
     Dosage: 5-325 MG
     Route: 048
  4. FEXOFENADINE [Concomitant]
     Dosage: 180 MG, UNK
     Route: 048
  5. PRILOSEC [Concomitant]
     Dosage: 20 MG, UNK
     Route: 048
  6. SUNITINIB MALATE [Concomitant]
     Indication: RENAL CELL CARCINOMA
     Dosage: 12.5 MG, UNK
     Route: 048
  7. TYLENOL-500 [Concomitant]
     Dosage: 25-500 MG
     Route: 048
  8. TRIAMCINOLONE [Concomitant]
     Dosage: 55 UG, UNK
  9. FLOMAX [Concomitant]
     Dosage: 0.4 MG, UNK
     Route: 048
  10. EXFORGE (VALSARTAN/AMLODIPINE BESILATE) [Concomitant]
     Dosage: 10-320 MG
     Route: 048
  11. LIPITOR [Concomitant]
     Dosage: 10 MG, UNK
     Route: 048

REACTIONS (4)
  - OPEN WOUND [None]
  - OSTEONECROSIS [None]
  - PAIN IN JAW [None]
  - TOOTHACHE [None]
